FAERS Safety Report 13168858 (Version 1)
Quarter: 2017Q1

REPORT INFORMATION
  Report Type: Spontaneous
  Country: US (occurrence: US)
  Receive Date: 20170131
  Receipt Date: 20170131
  Transmission Date: 20170428
  Serious: No
  Sender: FDA-Public Use
  Company Number: US-PFIZER INC-2017036850

PATIENT

DRUGS (2)
  1. DYLOJECT [Suspect]
     Active Substance: DICLOFENAC SODIUM
     Dosage: 1 ML, UNK
     Route: 042
  2. ONDANSETRON [Suspect]
     Active Substance: ONDANSETRON
     Dosage: 2MG/ML
     Route: 042

REACTIONS (1)
  - Product solubility abnormal [Unknown]
